FAERS Safety Report 22289833 (Version 2)
Quarter: 2023Q4

REPORT INFORMATION
  Report Type: Spontaneous
  Country: JP (occurrence: JP)
  Receive Date: 20230505
  Receipt Date: 20231103
  Transmission Date: 20240110
  Serious: Yes (Other)
  Sender: FDA-Public Use
  Company Number: JP-MSD-M2023-17331

PATIENT
  Sex: Male

DRUGS (2)
  1. OPDIVO [Suspect]
     Active Substance: NIVOLUMAB
     Indication: Oropharyngeal cancer
     Dosage: UNK
     Route: 065
  2. YERVOY [Concomitant]
     Active Substance: IPILIMUMAB
     Indication: Oropharyngeal cancer
     Dosage: UNK
     Route: 065
     Dates: start: 202211

REACTIONS (2)
  - Extremity necrosis [Recovering/Resolving]
  - Dermatitis [Unknown]
